FAERS Safety Report 8780735 (Version 1)
Quarter: 2012Q4

REPORT INFORMATION
  Report Type: 
  Country: US (occurrence: US)
  Receive Date: 20120913
  Receipt Date: 20120913
  Transmission Date: 20130627
  Serious: No
  Sender: FDA-Public Use
  Company Number: US-PFIZER INC-2012224896

PATIENT
  Age: 59 Year
  Sex: Female
  Weight: 56.69 kg

DRUGS (3)
  1. LYRICA [Suspect]
     Indication: NEURALGIA
     Dosage: 75 mg, 2x/day
     Dates: start: 20120903
  2. LYRICA [Suspect]
     Indication: CARPAL TUNNEL SYNDROME
  3. ETODOLAC [Concomitant]
     Indication: ARTHRITIS
     Dosage: 400 mg, 2x/day

REACTIONS (2)
  - Drug effect decreased [Unknown]
  - Gastrooesophageal reflux disease [Not Recovered/Not Resolved]
